FAERS Safety Report 6074213-X (Version None)
Quarter: 2009Q1

REPORT INFORMATION
  Report Type: 
  Country: None (occurrence: None)
  Receive Date: 20090211
  Receipt Date: 20090204
  Transmission Date: 20090719
  Serious: Yes (Hospitalization)
  Sender: FDA-Public Use
  Company Number: JP-SANOFI-SYNTHELABO-A01200900625

PATIENT
  Age: 67 Year
  Sex: Female
  Weight: 58 kg

DRUGS (7)
  1. PLAVIX [Suspect]
     Indication: PERCUTANEOUS CORONARY INTERVENTION
     Route: 048
     Dates: start: 20081017, end: 20090117
  2. PLAVIX [Suspect]
     Indication: STENT PLACEMENT
     Route: 048
     Dates: start: 20081017, end: 20090117
  3. PLAVIX [Suspect]
     Indication: ANGINA UNSTABLE
     Route: 048
     Dates: start: 20081017, end: 20090117
  4. FRANDOL TAPE [Concomitant]
     Indication: ANGINA UNSTABLE
     Dosage: UNK
     Route: 065
     Dates: start: 20081003
  5. HERBESSER [Concomitant]
     Indication: ANGINA UNSTABLE
     Dosage: UNK
     Route: 065
     Dates: start: 20081003
  6. LIPITOR [Concomitant]
     Indication: LIPIDS ABNORMAL
     Dosage: UNK
     Route: 065
     Dates: start: 20081017
  7. ASPIRIN [Concomitant]
     Indication: ANGINA UNSTABLE
     Dosage: UNK
     Route: 065
     Dates: start: 20081017

REACTIONS (1)
  - HEPATIC FUNCTION ABNORMAL [None]
